FAERS Safety Report 5426993-1 (Version None)
Quarter: 2007Q3

REPORT INFORMATION
  Report Type: 
  Country: None (occurrence: None)
  Receive Date: 20070827
  Receipt Date: 20070822
  Transmission Date: 20080115
  Serious: Yes (Death, Hospitalization)
  Sender: FDA-Public Use
  Company Number: ZW-GILEAD-2007-0012647

PATIENT
  Age: 34 Year
  Sex: Female
  Weight: 43 kg

DRUGS (6)
  1. EMTRICITABINE [Suspect]
     Indication: HIV INFECTION
     Route: 048
     Dates: start: 20070604
  2. TENOFOVIR DISOPROXIL FUMARATE [Suspect]
     Indication: HIV INFECTION
     Dosage: ORAL
     Route: 048
     Dates: start: 20070604
  3. KALETRA [Concomitant]
     Indication: HIV INFECTION
     Route: 048
     Dates: start: 20070604
  4. LOPERAMIDE HCL [Concomitant]
  5. MICONAZOLE ORAL GEL [Concomitant]
  6. CIPROFOXAN [Concomitant]

REACTIONS (2)
  - ANAEMIA [None]
  - HIV INFECTION [None]
